FAERS Safety Report 18198789 (Version 1)
Quarter: 2020Q3

REPORT INFORMATION
  Report Type: Spontaneous
  Country: US (occurrence: US)
  Receive Date: 20200826
  Receipt Date: 20200826
  Transmission Date: 20201103
  Serious: Yes (Death, Other)
  Sender: FDA-Public Use
  Company Number: US-TEVA-2020-US-1818271

PATIENT
  Age: 66 Year
  Sex: Female

DRUGS (1)
  1. HYDROXYCHLOROQUINE [Suspect]
     Active Substance: HYDROXYCHLOROQUINE
     Indication: SYSTEMIC LUPUS ERYTHEMATOSUS
     Dosage: 400 MILLIGRAM DAILY; 4.2MG/KG
     Route: 065

REACTIONS (4)
  - Nephropathy toxic [Unknown]
  - Cardiomyopathy [Fatal]
  - Haematuria [Unknown]
  - Toxicity to various agents [Fatal]
